FAERS Safety Report 11108730 (Version 1)
Quarter: 2015Q2

REPORT INFORMATION
  Report Type: Spontaneous
  Country: FR (occurrence: None)
  Receive Date: 20150511
  Receipt Date: 20150511
  Transmission Date: 20150821
  Serious: Yes (Other)
  Sender: FDA-Public Use
  Company Number: 2015COV00091

PATIENT
  Age: 67 Year
  Sex: Female

DRUGS (1)
  1. SOLATOL (SOTALOL) UNKNOWN [Suspect]
     Active Substance: SOTALOL HYDROCHLORIDE
     Dosage: 20 UNK, UNK
     Dates: start: 2007, end: 201401

REACTIONS (4)
  - Organising pneumonia [None]
  - Adenocarcinoma pancreas [None]
  - Colorectal adenocarcinoma [None]
  - Pulmonary fibrosis [None]

NARRATIVE: CASE EVENT DATE: 201406
